FAERS Safety Report 23425815 (Version 1)
Quarter: 2024Q1

REPORT INFORMATION
  Report Type: Report from Study
  Country: US (occurrence: US)
  Receive Date: 20240122
  Receipt Date: 20240122
  Transmission Date: 20240410
  Serious: No
  Sender: FDA-Public Use
  Company Number: US-Accord-391232

PATIENT
  Sex: Female

DRUGS (1)
  1. CLOZAPINE [Suspect]
     Active Substance: CLOZAPINE
     Indication: Schizophrenia
     Dosage: 200 MG TABLETS, TAKE ONE AT BEDTIME, 50 MG TAKE ONE BY MOUTH TWICE A DAY.

REACTIONS (1)
  - Treatment noncompliance [Unknown]
